FAERS Safety Report 9679199 (Version 1)
Quarter: 2013Q4

REPORT INFORMATION
  Report Type: Spontaneous
  Country: FR (occurrence: FR)
  Receive Date: 20131108
  Receipt Date: 20131108
  Transmission Date: 20140711
  Serious: Yes (Hospitalization)
  Sender: FDA-Public Use
  Company Number: FR-ROXANE LABORATORIES, INC.-2013-RO-01796RO

PATIENT
  Age: 58 Year
  Sex: Female

DRUGS (5)
  1. PREDNISONE [Suspect]
     Indication: RHEUMATOID ARTHRITIS
     Dosage: 10 MG
     Route: 048
  2. PREDNISONE [Suspect]
     Dosage: 5 MG
     Route: 048
  3. RITUXIMAB [Suspect]
     Indication: RHEUMATOID ARTHRITIS
     Dates: start: 200802
  4. LEFLUNOMIDE [Suspect]
     Indication: RHEUMATOID ARTHRITIS
     Dosage: 20 MG
  5. KETOPROFEN [Suspect]
     Indication: RHEUMATOID ARTHRITIS
     Dosage: 150 MG

REACTIONS (2)
  - Pasteurella infection [Recovered/Resolved]
  - Dermo-hypodermitis [Unknown]
